FAERS Safety Report 6380055-8 (Version None)
Quarter: 2009Q3

REPORT INFORMATION
  Report Type: 
  Country: None (occurrence: None)
  Receive Date: 20090928
  Receipt Date: 20090922
  Transmission Date: 20100115
  Serious: Yes (Hospitalization)
  Sender: FDA-Public Use
  Company Number: FR-MERCK-0909FRA00063

PATIENT
  Age: 76 Year
  Sex: Male

DRUGS (5)
  1. NOROXIN [Suspect]
     Indication: URINARY TRACT INFECTION
     Route: 048
     Dates: start: 20090217, end: 20090220
  2. LEVOFLOXACIN [Suspect]
     Indication: LUNG DISORDER
     Route: 048
     Dates: start: 20090115, end: 20090120
  3. CEFTRIAXONE SODIUM [Suspect]
     Indication: LUNG DISORDER
     Route: 048
     Dates: start: 20090115, end: 20090120
  4. PREDNISONE [Concomitant]
     Indication: CROHN'S DISEASE
     Route: 048
  5. MESALAMINE [Concomitant]
     Indication: CROHN'S DISEASE
     Route: 048

REACTIONS (1)
  - PSEUDOMEMBRANOUS COLITIS [None]
